FAERS Safety Report 11258259 (Version 1)
Quarter: 2015Q3

REPORT INFORMATION
  Report Type: Spontaneous
  Country: US (occurrence: None)
  Receive Date: 20150709
  Receipt Date: 20150709
  Transmission Date: 20151125
  Serious: Yes (Other)
  Sender: FDA-Public Use
  Company Number: None

PATIENT
  Age: 45 Year
  Sex: Female

DRUGS (14)
  1. ONDANSETRON [Concomitant]
     Active Substance: ONDANSETRON
  2. TYLENOL [Concomitant]
     Active Substance: ACETAMINOPHEN
  3. OXYCOD/APA [Concomitant]
  4. MUCINEX [Concomitant]
     Active Substance: GUAIFENESIN
  5. B COMPLESE VITAMIN [Concomitant]
  6. 1 LYSINE [Concomitant]
  7. MEDROXYPROGESTERONE ACETATE. [Concomitant]
     Active Substance: MEDROXYPROGESTERONE ACETATE
  8. SYMBICORT [Concomitant]
     Active Substance: BUDESONIDE\FORMOTEROL FUMARATE DIHYDRATE
  9. BENADRYL [Concomitant]
     Active Substance: DIPHENHYDRAMINE HYDROCHLORIDE
  10. LETROZOLE. [Concomitant]
     Active Substance: LETROZOLE
  11. LORAZEPAM. [Concomitant]
     Active Substance: LORAZEPAM
  12. IBRANCE [Suspect]
     Active Substance: PALBOCICLIB
     Indication: BREAST CANCER
     Dosage: QD 21 OF 28 DAYS
     Route: 048
     Dates: start: 20150430
  13. IRON [Concomitant]
     Active Substance: IRON
  14. PROTONIX [Concomitant]
     Active Substance: PANTOPRAZOLE SODIUM

REACTIONS (6)
  - Dyspnoea [None]
  - Nausea [None]
  - Crying [None]
  - Dizziness [None]
  - Full blood count decreased [None]
  - Contusion [None]

NARRATIVE: CASE EVENT DATE: 201506
